FAERS Safety Report 18927337 (Version 1)
Quarter: 2021Q1

REPORT INFORMATION
  Report Type: Report from Study
  Country: None (occurrence: BG)
  Receive Date: 20210223
  Receipt Date: 20210223
  Transmission Date: 20210420
  Serious: Yes (Death)
  Sender: FDA-Public Use
  Company Number: BG-ABBVIE-21K-022-3785313-00

PATIENT
  Age: 70 Year
  Sex: Male

DRUGS (2)
  1. DUODOPA [Suspect]
     Active Substance: CARBIDOPA\LEVODOPA
  2. DUODOPA [Suspect]
     Active Substance: CARBIDOPA\LEVODOPA
     Indication: PARKINSON^S DISEASE
     Dosage: MD: 9.0 ML, CR: 2,5 ML/H, EX: 1.0 ML.
     Route: 050
     Dates: start: 20190709, end: 20210220

REACTIONS (1)
  - Death [Fatal]

NARRATIVE: CASE EVENT DATE: 20210220
